FAERS Safety Report 19132795 (Version 1)
Quarter: 2021Q2

REPORT INFORMATION
  Report Type: Spontaneous
  Country: CA (occurrence: CA)
  Receive Date: 20210413
  Receipt Date: 20210413
  Transmission Date: 20210717
  Serious: Yes (Life-Threatening, Other)
  Sender: FDA-Public Use
  Company Number: CA-PFIZER INC-2021391362

PATIENT
  Age: 80 Year
  Sex: Female
  Weight: 151 kg

DRUGS (10)
  1. MIDAZOLAM. [Suspect]
     Active Substance: MIDAZOLAM
     Route: 041
  2. HYDROMORPH CONTIN [Suspect]
     Active Substance: HYDROMORPHONE
     Dosage: 3 MG
     Route: 048
  3. CEFTRIAXONE SODIUM. [Concomitant]
     Active Substance: CEFTRIAXONE SODIUM
  4. QUETIAPINE. [Concomitant]
     Active Substance: QUETIAPINE
  5. CALCIUM [Concomitant]
     Active Substance: CALCIUM
  6. PANTOPRAZOLE [Concomitant]
     Active Substance: PANTOPRAZOLE
  7. ELIQUIS [Concomitant]
     Active Substance: APIXABAN
  8. FENTANYL CITRATE. [Suspect]
     Active Substance: FENTANYL CITRATE
     Route: 041
  9. ATORVASTATIN [Concomitant]
     Active Substance: ATORVASTATIN
  10. HYDROMORPHONE [Concomitant]
     Active Substance: HYDROMORPHONE

REACTIONS (4)
  - Unresponsive to stimuli [Unknown]
  - Oxygen saturation abnormal [Unknown]
  - Respiration abnormal [Unknown]
  - Peripheral coldness [Unknown]
